FAERS Safety Report 5450461-4 (Version None)
Quarter: 2007Q3

REPORT INFORMATION
  Report Type: 
  Country: None (occurrence: None)
  Receive Date: 20070803
  Receipt Date: 20070622
  Transmission Date: 20080115
  Serious: No
  Sender: FDA-Public Use
  Company Number: 200711891BWH

PATIENT
  Age: 65 Year
  Sex: Male

DRUGS (4)
  1. NEXAVAR [Suspect]
     Indication: RENAL CELL CARCINOMA STAGE UNSPECIFIED
     Dosage: 400 MG, BID, ORAL; 400 MG, BID, ORAL; 200 MG, BID, ORAL
     Route: 048
     Dates: start: 20061001
  2. LISINOPRIL [Concomitant]
  3. SIMVASTATIN [Concomitant]
  4. PROMETHAZINE [Concomitant]

REACTIONS (5)
  - BLISTER [None]
  - COUGH [None]
  - GAIT DISTURBANCE [None]
  - HYPERKERATOSIS [None]
  - PALMAR-PLANTAR ERYTHRODYSAESTHESIA SYNDROME [None]
